FAERS Safety Report 7337828-4 (Version None)
Quarter: 2011Q1

REPORT INFORMATION
  Report Type: 
  Country: None (occurrence: None)
  Receive Date: 20110308
  Receipt Date: 20110301
  Transmission Date: 20110831
  Serious: Yes (Death, Other)
  Sender: FDA-Public Use
  Company Number: US-ROCHE-753309

PATIENT
  Sex: Male

DRUGS (1)
  1. CAPECITABINE [Suspect]
     Route: 048
     Dates: start: 20101114

REACTIONS (2)
  - DEATH [None]
  - DEEP VEIN THROMBOSIS [None]
